FAERS Safety Report 9658028 (Version 1)
Quarter: 2013Q4

REPORT INFORMATION
  Report Type: Spontaneous
  Country: GB (occurrence: None)
  Receive Date: 20131029
  Receipt Date: 20131029
  Transmission Date: 20140711
  Serious: Yes (Congenital Anomaly, Other)
  Sender: FDA-Public Use
  Company Number: AUR-APL-2013-08856

PATIENT
  Sex: 0

DRUGS (1)
  1. LEVETIRACETAM (LEVETIRACETAM) [Suspect]
     Indication: PRODUCT USED FOR UNKNOWN INDICATION
     Dosage: TRANSPLACENTAL
     Dates: end: 2013

REACTIONS (4)
  - Pregnancy [None]
  - Congenital anomaly [None]
  - Heart disease congenital [None]
  - Maternal drugs affecting foetus [None]
